FAERS Safety Report 4545579-4 (Version None)
Quarter: 2005Q1

REPORT INFORMATION
  Report Type: 
  Country: None (occurrence: None)
  Receive Date: 20050103
  Receipt Date: 20041209
  Transmission Date: 20050727
  Serious: Yes (Life-Threatening, Other)
  Sender: FDA-Public Use
  Company Number: USA041285887

PATIENT
  Age: 37 Year
  Sex: Male

DRUGS (1)
  1. ALIMTA [Suspect]
     Dosage: 835 MG
     Dates: start: 20041202, end: 20041202

REACTIONS (6)
  - APNOEA [None]
  - CHEST PAIN [None]
  - CYANOSIS [None]
  - DYSPNOEA [None]
  - ERYTHEMA [None]
  - FLUSHING [None]
